FAERS Safety Report 7423980-9 (Version None)
Quarter: 2011Q2

REPORT INFORMATION
  Report Type: 
  Country: None (occurrence: None)
  Receive Date: 20110419
  Receipt Date: 20110412
  Transmission Date: 20111010
  Serious: Yes (Other)
  Sender: FDA-Public Use
  Company Number: B0713275A

PATIENT
  Age: 67 Year
  Sex: Male

DRUGS (1)
  1. ZOVIRAX [Suspect]
     Route: 048

REACTIONS (1)
  - DISSEMINATED INTRAVASCULAR COAGULATION [None]
